FAERS Safety Report 7042215-2 (Version None)
Quarter: 2010Q4

REPORT INFORMATION
  Report Type: 
  Country: None (occurrence: None)
  Receive Date: 20101013
  Receipt Date: 20080909
  Transmission Date: 20110411
  Serious: Yes (Other)
  Sender: FDA-Public Use
  Company Number: DE-JNJFOC-20080902509

PATIENT
  Age: 31 Year
  Sex: Female

DRUGS (1)
  1. TAVANIC [Suspect]
     Indication: BRONCHITIS
     Dosage: 4 DAYS
     Route: 048

REACTIONS (2)
  - DRUG EXPOSURE DURING PREGNANCY [None]
  - ULTRASOUND ANTENATAL SCREEN ABNORMAL [None]
